FAERS Safety Report 5512162-3 (Version None)
Quarter: 2007Q4

REPORT INFORMATION
  Report Type: 
  Country: None (occurrence: None)
  Receive Date: 20071112
  Receipt Date: 20071101
  Transmission Date: 20080405
  Serious: Yes (Hospitalization)
  Sender: FDA-Public Use
  Company Number: US-SHR-US-2005-008456

PATIENT
  Age: 37 Year
  Sex: Male

DRUGS (2)
  1. BETASERON [Suspect]
     Indication: MULTIPLE SCLEROSIS
     Dosage: 8 MIU, EVERY 2D
     Route: 058
     Dates: start: 20021215, end: 20050427
  2. BETASERON [Suspect]
     Route: 058
     Dates: start: 20050502

REACTIONS (5)
  - EPISTAXIS [None]
  - GINGIVAL BLEEDING [None]
  - PLATELET COUNT DECREASED [None]
  - RASH MACULAR [None]
  - TONGUE BLISTERING [None]
